FAERS Safety Report 5441741-7 (Version None)
Quarter: 2007Q3

REPORT INFORMATION
  Report Type: 
  Country: None (occurrence: None)
  Receive Date: 20070829
  Receipt Date: 20070829
  Transmission Date: 20080115
  Serious: Yes (Hospitalization)
  Sender: FDA-Public Use
  Company Number: None

PATIENT
  Sex: Female
  Weight: 86.8 kg

DRUGS (4)
  1. FLUOROURACIL [Suspect]
     Dosage: 816 MG
  2. BEVACIZUMAB (RHUMAB VEGF) [Suspect]
     Dosage: 434 MG
  3. LEUCOVORIN CALCIUM [Suspect]
     Dosage: 816 MG
  4. ELOXATIN [Suspect]
     Dosage: 175 MG

REACTIONS (3)
  - BILIARY DILATATION [None]
  - BLOOD BILIRUBIN INCREASED [None]
  - OCULAR ICTERUS [None]
